FAERS Safety Report 9084217 (Version 1)
Quarter: 2013Q1

REPORT INFORMATION
  Report Type: Report from Study
  Country: US (occurrence: US)
  Receive Date: 20130131
  Receipt Date: 20130131
  Transmission Date: 20140127
  Serious: No
  Sender: FDA-Public Use
  Company Number: US-ABBOTT-12P-163-1014745-00

PATIENT
  Sex: Female

DRUGS (3)
  1. HUMIRA [Suspect]
     Indication: CROHN^S DISEASE
     Dates: start: 20121028
  2. PREDISONE [Concomitant]
     Indication: PRODUCT USED FOR UNKNOWN INDICATION
  3. RITALIN [Concomitant]
     Indication: FATIGUE

REACTIONS (14)
  - Palpitations [Not Recovered/Not Resolved]
  - Hot flush [Not Recovered/Not Resolved]
  - Weight increased [Unknown]
  - Hyperhidrosis [Not Recovered/Not Resolved]
  - Heart rate increased [Unknown]
  - Heart rate increased [Unknown]
  - Heart rate increased [Unknown]
  - Insomnia [Not Recovered/Not Resolved]
  - Pain in extremity [Unknown]
  - Injection site pain [Unknown]
  - Device malfunction [Unknown]
  - Incorrect dose administered [Unknown]
  - Device malfunction [Unknown]
  - Incorrect dose administered [Unknown]
